FAERS Safety Report 6861351-4 (Version None)
Quarter: 2010Q3

REPORT INFORMATION
  Report Type: 
  Country: None (occurrence: None)
  Receive Date: 20100715
  Receipt Date: 20100701
  Transmission Date: 20110219
  Serious: Yes (Other)
  Sender: FDA-Public Use
  Company Number: 2010AP001364

PATIENT
  Age: 77 Year
  Sex: Male

DRUGS (2)
  1. SERTRALINE HYDROCHLORIDE [Suspect]
     Dosage: 100 MG;
  2. SIMVASTATIN [Concomitant]

REACTIONS (2)
  - CONVULSION [None]
  - DRUG DISPENSING ERROR [None]
